FAERS Safety Report 5613201-1 (Version None)
Quarter: 2008Q1

REPORT INFORMATION
  Report Type: 
  Country: None (occurrence: None)
  Receive Date: 20080129
  Receipt Date: 20080114
  Transmission Date: 20080703
  Serious: Yes (Hospitalization)
  Sender: FDA-Public Use
  Company Number: 2008S1000698

PATIENT
  Age: 27 Year
  Sex: Male

DRUGS (7)
  1. RANITIDINE [Suspect]
     Indication: DRUG USE FOR UNKNOWN INDICATION
     Dosage: 150 MG; TWICE A DAY, 1050 MG; DAILY
  2. HYOSCINE HBR HYT [Suspect]
     Indication: DRUG USE FOR UNKNOWN INDICATION
     Dosage: 210 MG;, 300 UG;
     Dates: start: 20070604, end: 20070604
  3. CLOZARIL [Suspect]
     Indication: SCHIZOPHRENIA
     Dosage: 6100 MG;, 450 MG; DAILY
     Dates: start: 20070604, end: 20070604
  4. CLOZARIL [Suspect]
     Indication: SCHIZOPHRENIA
     Dosage: 6100 MG;, 450 MG; DAILY
     Dates: start: 20011003
  5. CLOZARIL [Suspect]
     Indication: SCHIZOPHRENIA
     Dosage: 6100 MG;, 450 MG; DAILY
     Dates: start: 20011003
  6. COCAINE (COCAINE) [Suspect]
     Indication: DRUG USE FOR UNKNOWN INDICATION
  7. VALPROATE SODIUM [Suspect]
     Indication: MOOD ALTERED
     Dosage: 9600 MG; DAILY, 800 MG; TWICE A DAY
     Dates: start: 20070604, end: 20070604

REACTIONS (8)
  - BLOOD CREATINE PHOSPHOKINASE INCREASED [None]
  - HYPOXIA [None]
  - LOWER RESPIRATORY TRACT INFECTION [None]
  - OVERDOSE [None]
  - PYREXIA [None]
  - RENAL FAILURE ACUTE [None]
  - TACHYCARDIA [None]
  - THROMBOCYTOPENIA [None]
